FAERS Safety Report 8825164 (Version 1)
Quarter: 2012Q4

REPORT INFORMATION
  Report Type: 
  Country: US (occurrence: US)
  Receive Date: 20121004
  Receipt Date: 20121004
  Transmission Date: 20130627
  Serious: Yes (Other)
  Sender: FDA-Public Use
  Company Number: US-GLAXOSMITHKLINE-A0995291A

PATIENT
  Sex: Male

DRUGS (8)
  1. FONDAPARINUX SODIUM [Suspect]
     Indication: DEEP VEIN THROMBOSIS
     Route: 058
  2. FENTANYL PATCH [Concomitant]
  3. LACTULOSE [Concomitant]
  4. DYAZIDE [Concomitant]
  5. CLONIDINE [Concomitant]
  6. MECLIZINE [Concomitant]
  7. ATENOLOL [Concomitant]
  8. ARIXTRA [Concomitant]

REACTIONS (3)
  - Rectal haemorrhage [Not Recovered/Not Resolved]
  - Contusion [Not Recovered/Not Resolved]
  - Drug level decreased [Unknown]
